FAERS Safety Report 16741824 (Version 1)
Quarter: 2019Q3

REPORT INFORMATION
  Report Type: Spontaneous
  Country: SE (occurrence: SE)
  Receive Date: 20190826
  Receipt Date: 20190826
  Transmission Date: 20191005
  Serious: Yes (Hospitalization)
  Sender: FDA-Public Use
  Company Number: SE-ROCHE-2388494

PATIENT
  Age: 78 Year
  Sex: Male

DRUGS (2)
  1. ROACTEMRA [Suspect]
     Active Substance: TOCILIZUMAB
     Indication: RHEUMATOID ARTHRITIS
     Route: 065
     Dates: start: 20101215, end: 20190707
  2. METHOTREXATE. [Concomitant]
     Active Substance: METHOTREXATE
     Route: 065
     Dates: start: 20060315

REACTIONS (2)
  - Gastrointestinal haemorrhage [Recovered/Resolved with Sequelae]
  - Diverticular perforation [Recovered/Resolved with Sequelae]

NARRATIVE: CASE EVENT DATE: 20190507
